FAERS Safety Report 20421666 (Version 2)
Quarter: 2022Q1

REPORT INFORMATION
  Report Type: Spontaneous
  Country: US (occurrence: None)
  Receive Date: 20220203
  Receipt Date: 20220228
  Transmission Date: 20220424
  Serious: No
  Sender: FDA-Public Use
  Company Number: 2022A006829

PATIENT
  Sex: Female
  Weight: 79.4 kg

DRUGS (4)
  1. BUDESONIDE\FORMOTEROL\GLYCOPYRRONIUM [Suspect]
     Active Substance: BUDESONIDE\FORMOTEROL\GLYCOPYRRONIUM
     Indication: Emphysema
     Dosage: 160 MCG./9 MCG./4.8 MCG., 1 PUFF TWICE A DAY
     Route: 055
     Dates: start: 20210901
  2. VENTOLIN [Concomitant]
     Active Substance: ALBUTEROL SULFATE
  3. SINGULAIR [Concomitant]
     Active Substance: MONTELUKAST SODIUM
     Indication: Cough
  4. CLARITIN [Concomitant]
     Active Substance: LORATADINE
     Indication: Multiple allergies

REACTIONS (6)
  - Choking [Not Recovered/Not Resolved]
  - Dyspnoea [Not Recovered/Not Resolved]
  - Incorrect dose administered by product [Not Recovered/Not Resolved]
  - Device use issue [Not Recovered/Not Resolved]
  - Off label use [Not Recovered/Not Resolved]
  - Device malfunction [Unknown]
